FAERS Safety Report 14102488 (Version 1)
Quarter: 2020Q3

REPORT INFORMATION
  Report Type: Report from Study
  Country: RU (occurrence: RU)
  Receive Date: 20171018
  Receipt Date: 20171018
  Transmission Date: 20201104
  Serious: Yes (Death, Life-Threatening, Hospitalization, Other)
  Sender: FDA-Public Use
  Company Number: RU-PFIZER INC-2017445175

PATIENT
  Age: 66 Year
  Sex: Male

DRUGS (14)
  1. METHYLPREDNISOLONE. [Suspect]
     Active Substance: METHYLPREDNISOLONE
     Dosage: UNK
     Route: 065
  2. TREMELIMUMAB. [Suspect]
     Active Substance: TREMELIMUMAB
     Indication: NON-SMALL CELL LUNG CANCER
     Dosage: 75 MG, CYCLIC (EVERY FOUR WEEKS)
     Route: 042
     Dates: start: 20170809, end: 20170809
  3. ONDANSETRON [Concomitant]
     Active Substance: ONDANSETRON
     Indication: VOMITING
     Dosage: 8 MG DAY1,2,3 EVERY CYCLE
     Route: 042
     Dates: start: 20170809
  4. DIOSMECTITE [Concomitant]
     Active Substance: MONTMORILLONITE
     Indication: ENTEROCOLITIS
     Dosage: 1 PACK DAILY
     Route: 048
     Dates: start: 20170817
  5. OMEPRAZOLE. [Concomitant]
     Active Substance: OMEPRAZOLE
     Indication: ENTEROCOLITIS
     Dosage: 20 MG, 2X/DAY
     Route: 048
     Dates: start: 20170817
  6. ETOPOSIDE. [Suspect]
     Active Substance: ETOPOSIDE
     Dosage: 100 MG/M2
     Route: 065
     Dates: start: 20170811, end: 20170811
  7. PREDNISOLONE. [Suspect]
     Active Substance: PREDNISOLONE
     Indication: ENTEROCOLITIS
     Dosage: 65 MG, 1X/DAY
     Route: 048
     Dates: start: 20170817
  8. LOPERAMIDE [Concomitant]
     Active Substance: LOPERAMIDE
     Indication: ENTEROCOLITIS
     Dosage: 2 MG, 2X/DAY
     Route: 048
     Dates: start: 20170817
  9. MEDI4736 [Suspect]
     Active Substance: DURVALUMAB
     Indication: NON-SMALL CELL LUNG CANCER
     Dosage: 1500 MG, CYCLIC (EVERY FOUR WEEKS)
     Route: 042
     Dates: start: 20170809, end: 20170809
  10. REHYDRONE [Concomitant]
     Indication: ENTEROCOLITIS
     Dosage: 1 PACK DAILY
     Route: 048
     Dates: start: 20170817
  11. ETOPOSIDE. [Suspect]
     Active Substance: ETOPOSIDE
     Indication: NON-SMALL CELL LUNG CANCER
     Dosage: 100 MG/M2
     Route: 065
     Dates: start: 20170809, end: 20170809
  12. ETOPOSIDE. [Suspect]
     Active Substance: ETOPOSIDE
     Dosage: 100 MG/M2
     Route: 065
     Dates: start: 20170810, end: 20170810
  13. CREON [Concomitant]
     Active Substance: PANCRELIPASE AMYLASE\PANCRELIPASE LIPASE\PANCRELIPASE PROTEASE
     Indication: ENTEROCOLITIS
     Dosage: UNK UNK, 4X/DAY
     Route: 048
     Dates: start: 20170817
  14. CARBOPLATIN. [Suspect]
     Active Substance: CARBOPLATIN
     Indication: NON-SMALL CELL LUNG CANCER
     Dosage: 5 AUC
     Route: 065
     Dates: start: 20170809, end: 20170809

REACTIONS (1)
  - Embolism arterial [Fatal]

NARRATIVE: CASE EVENT DATE: 20171005
